FAERS Safety Report 24217792 (Version 7)
Quarter: 2024Q4

REPORT INFORMATION
  Report Type: Spontaneous
  Country: TW (occurrence: TW)
  Receive Date: 20240816
  Receipt Date: 20241128
  Transmission Date: 20250115
  Serious: Yes (Hospitalization)
  Sender: PHARMAESSENTIA
  Company Number: TW-PHARMAESSENTIA CORPORATION-TW-2024-PEC-003974

PATIENT
  Age: 52 Year
  Sex: Male

DRUGS (44)
  1. BESREMI [Suspect]
     Active Substance: ROPEGINTERFERON ALFA-2B-NJFT
     Indication: Polycythaemia vera
     Dosage: 250 MCG, Q2W
     Route: 058
     Dates: start: 20240517
  2. BESREMI [Suspect]
     Active Substance: ROPEGINTERFERON ALFA-2B-NJFT
     Dosage: 250 MCG, Q2W
     Route: 065
     Dates: start: 20240531
  3. BESREMI [Suspect]
     Active Substance: ROPEGINTERFERON ALFA-2B-NJFT
     Dosage: 250 MCG, Q2W
     Route: 058
     Dates: start: 20240614
  4. BESREMI [Suspect]
     Active Substance: ROPEGINTERFERON ALFA-2B-NJFT
     Dosage: 500 MCG, Q2W
     Route: 058
     Dates: start: 20240628
  5. BESREMI [Suspect]
     Active Substance: ROPEGINTERFERON ALFA-2B-NJFT
     Dosage: 500 MCG, EVERY 3 WEEKS
     Route: 058
     Dates: start: 20240726
  6. BESREMI [Suspect]
     Active Substance: ROPEGINTERFERON ALFA-2B-NJFT
     Dosage: 500 MCG, EVERY 3 WEEKS
     Route: 058
     Dates: start: 20240816
  7. BESREMI [Suspect]
     Active Substance: ROPEGINTERFERON ALFA-2B-NJFT
     Dosage: 500 MCG, EVERY 3 WEEKS
     Route: 058
     Dates: start: 20240906
  8. BESREMI [Suspect]
     Active Substance: ROPEGINTERFERON ALFA-2B-NJFT
     Dosage: 500 MCG, EVERY 3 WEEKS
     Route: 058
     Dates: start: 20240927
  9. HALOPERIDOL [Suspect]
     Active Substance: HALOPERIDOL
     Indication: Nervous system disorder prophylaxis
     Dosage: 1 DOSAGE FORM, QHS (BEDTIME)
     Route: 048
     Dates: start: 20241017
  10. DEXAMETHASONE [Suspect]
     Active Substance: DEXAMETHASONE
     Indication: Rheumatoid arthritis
     Dosage: 1 DOSAGE FORM, QD
     Route: 048
     Dates: end: 20240704
  11. HYDROXYUREA [Concomitant]
     Active Substance: HYDROXYUREA
     Indication: Polycythaemia vera
     Dosage: 1, BID
     Route: 048
     Dates: end: 20240607
  12. HYDROXYUREA [Concomitant]
     Active Substance: HYDROXYUREA
     Dosage: 1, QD
     Route: 048
     Dates: start: 20240607, end: 20240705
  13. DIPHENIDOL [DIFENIDOL] [Concomitant]
     Indication: Vertigo
     Dosage: 1 DOSAGE FORM, BID
     Route: 048
  14. UTRAPHEN [Concomitant]
     Indication: Pain
     Dosage: 1 DOSAGE FORM, TID
     Route: 048
  15. SYNORID [Concomitant]
     Indication: Gout
     Dosage: 1 DOSAGE FORM, QD
     Route: 048
  16. SYNORID [Concomitant]
     Indication: Gouty arthritis
  17. METICORT [Concomitant]
     Indication: Rheumatoid arthritis
     Dosage: 1 DOSAGE FORM, QD
     Route: 048
  18. BISOPROLOL FUMARATE [Concomitant]
     Active Substance: BISOPROLOL FUMARATE
     Indication: Aortic valve stenosis
     Dosage: 1 DOSAGE FORM, QD
     Route: 048
  19. PLAVIX [Concomitant]
     Active Substance: CLOPIDOGREL BISULFATE
     Indication: Cardiovascular event prophylaxis
     Dosage: 1 DOSAGE FORM, QD
     Route: 048
  20. PRONOLOL [Concomitant]
     Indication: Aortic valve stenosis
     Dosage: 1 DOSAGE FORM, QD
     Route: 048
  21. CRESTOR [Concomitant]
     Active Substance: ROSUVASTATIN CALCIUM
     Indication: Hypertriglyceridaemia
     Dosage: 1 DOSAGE FORM, QD
     Route: 048
  22. THEOPHYLLINE [Concomitant]
     Active Substance: THEOPHYLLINE
     Indication: Pulmonary valve incompetence
     Dosage: 1 DOSAGE FORM, QD
     Route: 048
  23. COXINE [Concomitant]
     Indication: Pulmonary valve incompetence
     Dosage: 1 DOSAGE FORM, QD
     Route: 048
  24. FOLIC ACID [Concomitant]
     Active Substance: FOLIC ACID
     Indication: Anaemia
     Dosage: 1 DOSAGE FORM, QD
     Route: 048
  25. TIZALIN [Concomitant]
     Indication: Muscle spasms
     Dosage: 1 DOSAGE FORM, BID
     Route: 048
  26. ALINAMIN F-50 [Concomitant]
     Indication: Nervous system disorder
     Dosage: 1 DOSAGE FORM, BID
     Route: 048
  27. ALINAMIN F-50 [Concomitant]
     Indication: Asthenopia
  28. METHOTREXATE [Concomitant]
     Active Substance: METHOTREXATE
     Indication: Rheumatoid arthritis
     Dosage: 6 DOSAGE FORM, QD
     Route: 048
  29. METHYLCOBALAMIN [Concomitant]
     Active Substance: METHYLCOBALAMIN
     Indication: Neuropathy peripheral
     Dosage: 1 DOSAGE FORM, TID
     Route: 048
  30. METHYLCOBALAMIN [Concomitant]
     Active Substance: METHYLCOBALAMIN
     Indication: Rheumatoid arthritis
  31. STROCAIN [OXETACAINE] [Concomitant]
     Indication: Abdominal pain upper
     Dosage: 1 DOSAGE FORM, BID
     Route: 048
  32. COLCHICINE [Concomitant]
     Active Substance: COLCHICINE
     Indication: Gout
     Dosage: 1 DOSAGE FORM, BID
     Route: 048
  33. CYCLOSPORINE [Concomitant]
     Active Substance: CYCLOSPORINE
     Indication: Rheumatoid arthritis
     Dosage: 1 DOSAGE FORM, QD
     Route: 048
     Dates: end: 20240704
  34. MORPHINE [Concomitant]
     Active Substance: MORPHINE
     Indication: Analgesic therapy
     Dosage: 1 DOSAGE FORM, PRN
     Route: 048
  35. LANSOPRAZOLE [Concomitant]
     Active Substance: LANSOPRAZOLE
     Indication: Abdominal pain upper
     Dosage: 30 MG, 1 QD
     Route: 048
  36. ZEROPIN [Concomitant]
     Indication: Fibromyalgia
     Dosage: UNK, 1 BID
     Route: 048
  37. TOPSYM [Concomitant]
     Indication: Eczema
     Dosage: UNK, QS BID, 5 MG/TUBE
     Route: 061
     Dates: start: 20240815
  38. THROUGH [SENNOSIDE A+B] [Concomitant]
     Indication: Constipation
     Dosage: 2 DOSAGE FORM, QHS (BEDTIME)
     Route: 048
     Dates: start: 20240823
  39. DIMETHICONE [Concomitant]
     Active Substance: DIMETHICONE
     Indication: Abdominal distension
     Dosage: 1 DOSAGE FORM, TID
     Route: 048
     Dates: start: 20240823
  40. DICLOFENAC [Concomitant]
     Active Substance: DICLOFENAC
     Indication: Analgesic therapy
     Dosage: 1 DOSAGE FORM, BID, PRN
     Route: 048
     Dates: start: 20240927, end: 20241023
  41. INDOY [Concomitant]
     Indication: Inflammation
     Dosage: 2 DOSAGE FORM, BID
     Route: 048
     Dates: end: 20241017
  42. INDOY [Concomitant]
     Indication: Musculoskeletal pain
     Dosage: 1 DOSAGE FORM, TID
     Route: 048
     Dates: start: 20241023
  43. ARCOXIA [Concomitant]
     Active Substance: ETORICOXIB
     Indication: Osteoarthritis
     Dosage: 1 DOSAGE FORM, QD
     Route: 048
     Dates: start: 20241017, end: 20241019
  44. ACEMETACIN [Concomitant]
     Active Substance: ACEMETACIN
     Indication: Osteoarthritis
     Dosage: 1 DOSAGE FORM, QD
     Route: 048
     Dates: start: 20241019, end: 20241022

REACTIONS (18)
  - Polymyositis [Not Recovered/Not Resolved]
  - Chest discomfort [Recovering/Resolving]
  - Bradycardia [Recovering/Resolving]
  - Cataract [Unknown]
  - Lung infiltration [Unknown]
  - Photophobia [Not Recovered/Not Resolved]
  - Blood creatine phosphokinase increased [Recovered/Resolved]
  - Chromaturia [Recovering/Resolving]
  - Dyspnoea exertional [Not Recovered/Not Resolved]
  - Aspartate aminotransferase increased [Recovered/Resolved]
  - Alanine aminotransferase increased [Recovered/Resolved]
  - Decreased appetite [Unknown]
  - Vision blurred [Unknown]
  - Myalgia [Not Recovered/Not Resolved]
  - White blood cell count decreased [Recovered/Resolved]
  - Haematocrit decreased [Not Recovered/Not Resolved]
  - Fatigue [Unknown]
  - Somnolence [Unknown]

NARRATIVE: CASE EVENT DATE: 20240101
